FAERS Safety Report 4602284-3 (Version None)
Quarter: 2005Q2

REPORT INFORMATION
  Report Type: 
  Country: None (occurrence: None)
  Receive Date: 20050215
  Receipt Date: 20041104
  Transmission Date: 20051028
  Serious: No
  Sender: FDA-Public Use
  Company Number: 382010

PATIENT
  Age: 41 Year
  Sex: Male
  Weight: 86.6 kg

DRUGS (3)
  1. PEGASYS [Suspect]
     Indication: HEPATITIS C VIRUS
     Dosage: SUBCUTANEOUS
     Route: 058
     Dates: start: 20040618
  2. COPEGUS [Suspect]
     Indication: HEPATITIS C VIRUS
     Dosage: ORAL
     Route: 048
     Dates: start: 20040618
  3. SYNTHROID [Suspect]
     Indication: HYPOTHYROIDISM
     Dosage: ORAL
     Route: 048

REACTIONS (6)
  - ASTHENIA [None]
  - DIZZINESS [None]
  - HEADACHE [None]
  - HYPOTHYROIDISM [None]
  - PALPITATIONS [None]
  - VENTRICULAR EXTRASYSTOLES [None]
